FAERS Safety Report 9713111 (Version 2)
Quarter: 2013Q4

REPORT INFORMATION
  Report Type: Spontaneous
  Country: US (occurrence: US)
  Receive Date: 20131126
  Receipt Date: 20131126
  Transmission Date: 20140711
  Serious: No
  Sender: FDA-Public Use
  Company Number: US-ASTELLAS-2013US005228

PATIENT
  Age: 61 Year
  Sex: Male

DRUGS (1)
  1. LEXISCAN [Suspect]
     Indication: PRODUCT USED FOR UNKNOWN INDICATION
     Dosage: UNK MG, TOTAL DOSE
     Route: 065
     Dates: start: 20130508, end: 20130508

REACTIONS (1)
  - Injection site extravasation [Unknown]
